FAERS Safety Report 22315914 (Version 1)
Quarter: 2023Q2

REPORT INFORMATION
  Report Type: Spontaneous
  Country: DE (occurrence: DE)
  Receive Date: 20230512
  Receipt Date: 20230512
  Transmission Date: 20230722
  Serious: Yes (Other)
  Sender: FDA-Public Use
  Company Number: None

PATIENT
  Sex: Female
  Weight: 2.426 kg

DRUGS (6)
  1. CITALOPRAM HYDROBROMIDE [Suspect]
     Active Substance: CITALOPRAM HYDROBROMIDE
     Indication: Maternal exposure timing unspecified
     Dosage: 10 MG, QD
     Route: 064
     Dates: start: 20210206, end: 20211107
  2. REPEVAX [Concomitant]
     Active Substance: DIPHTHERIA AND TETANUS TOXOIDS AND ACELLULAR PERTUSSIS ADSORBED AND INACTIVATED POLIOVIRUS VACCINE
     Indication: Maternal exposure timing unspecified
     Route: 064
     Dates: start: 20210830, end: 20210830
  3. Comirnaty monovalent (BioNTech/Pfizer) [Concomitant]
     Indication: Maternal exposure timing unspecified
     Route: 064
     Dates: start: 20210623, end: 20210623
  4. Comirnaty monovalent (BioNTech/Pfizer) [Concomitant]
     Dosage: UNK
     Route: 064
     Dates: start: 20210804, end: 20210804
  5. LEVOTHYROXINE SODIUM [Concomitant]
     Active Substance: LEVOTHYROXINE SODIUM
     Indication: Maternal exposure timing unspecified
     Dosage: 50 ?G, QD
     Route: 064
     Dates: start: 20210206, end: 20211107
  6. SUMATRIPTAN [Concomitant]
     Active Substance: SUMATRIPTAN
     Indication: Maternal exposure timing unspecified
     Dosage: ABOUT ONCE MONTHLY
     Route: 064

REACTIONS (3)
  - Small for dates baby [Recovered/Resolved]
  - Bradycardia neonatal [Unknown]
  - Foetal exposure during pregnancy [Unknown]

NARRATIVE: CASE EVENT DATE: 20211101
